FAERS Safety Report 8797548 (Version 2)
Quarter: 2012Q4

REPORT INFORMATION
  Report Type: 
  Country: US (occurrence: US)
  Receive Date: 20120919
  Receipt Date: 20121222
  Transmission Date: 20130627
  Serious: No
  Sender: FDA-Public Use
  Company Number: US-009507513-1209USA007498

PATIENT
  Sex: Female
  Weight: 74.38 kg

DRUGS (1)
  1. NEXPLANON [Suspect]
     Indication: CONTRACEPTION
     Dosage: 1 DF,1time insertion on the left arm
     Dates: start: 20120820

REACTIONS (5)
  - Decreased appetite [Unknown]
  - Dizziness [Unknown]
  - Menorrhagia [Unknown]
  - Dysmenorrhoea [Unknown]
  - Headache [Unknown]
